FAERS Safety Report 10067884 (Version 3)
Quarter: 2014Q2

REPORT INFORMATION
  Report Type: Spontaneous
  Country: US (occurrence: US)
  Receive Date: 20140409
  Receipt Date: 20140617
  Transmission Date: 20141212
  Serious: Yes (Other)
  Sender: FDA-Public Use
  Company Number: US-ABBVIE-14P-163-1223628-00

PATIENT
  Age: 21 Year
  Sex: Male
  Weight: 90.8 kg

DRUGS (2)
  1. HUMIRA [Suspect]
     Indication: PSORIASIS
     Dates: start: 201110, end: 20140219
  2. CLOBETASOL [Concomitant]
     Indication: PRODUCT USED FOR UNKNOWN INDICATION
     Dosage: FOAM-SMALL AMOUNT TO SCALP 2 -3 TIMES/WEEK
     Route: 061
     Dates: start: 2011, end: 2014

REACTIONS (1)
  - Mycosis fungoides [Recovering/Resolving]
